FAERS Safety Report 23648414 (Version 1)
Quarter: 2024Q1

REPORT INFORMATION
  Report Type: Report from Study
  Country: US (occurrence: US)
  Receive Date: 20240319
  Receipt Date: 20240319
  Transmission Date: 20240410
  Serious: Yes (Other)
  Sender: FDA-Public Use
  Company Number: US-TEVA-VS-3167391

PATIENT
  Age: 75 Year
  Sex: Female

DRUGS (1)
  1. AUSTEDO XR [Suspect]
     Active Substance: DEUTETRABENAZINE
     Indication: Tardive dyskinesia
     Route: 065
     Dates: start: 20240124

REACTIONS (4)
  - Tremor [Unknown]
  - Parkinsonism [Unknown]
  - Gait disturbance [Unknown]
  - Fatigue [Unknown]

NARRATIVE: CASE EVENT DATE: 20240101
